FAERS Safety Report 6370908-9 (Version None)
Quarter: 2009Q3

REPORT INFORMATION
  Report Type: 
  Country: None (occurrence: None)
  Receive Date: 20090923
  Receipt Date: 20070604
  Transmission Date: 20100115
  Serious: No
  Sender: FDA-Public Use
  Company Number: US-ASTRAZENECA-2006UW23534

PATIENT
  Age: 18841 Day
  Sex: Female

DRUGS (44)
  1. SEROQUEL [Suspect]
     Indication: DEPRESSION
     Dosage: 25-200 MG
     Route: 048
     Dates: start: 20040223
  2. SEROQUEL [Suspect]
     Indication: SCHIZOAFFECTIVE DISORDER
     Dosage: 25-200 MG
     Route: 048
     Dates: start: 20040223
  3. ZYPREXA [Concomitant]
     Dates: start: 20030101
  4. CITALOPRAM [Concomitant]
  5. EFFEXOR [Concomitant]
  6. ACTONEL [Concomitant]
  7. AVANDIA [Concomitant]
  8. CENSUTIN [Concomitant]
  9. CLONAZEPAM [Concomitant]
  10. DIPHENHYDRAMINE HCL [Concomitant]
  11. FERROUS SULFATE TAB [Concomitant]
  12. LORTAB [Concomitant]
  13. PREVACID [Concomitant]
  14. MENEST [Concomitant]
  15. SINGULAIR [Concomitant]
  16. KLONOPIN [Concomitant]
  17. ACTIGALL [Concomitant]
  18. QUESTRAN [Concomitant]
  19. VISTARIL [Concomitant]
  20. FOSAMAX [Concomitant]
  21. LISINOPRIL [Concomitant]
  22. NABUMETONE [Concomitant]
  23. PROPOXYPHENE HCL CAP [Concomitant]
  24. CYCLOBENZAPRINE [Concomitant]
  25. TRAVATAN [Concomitant]
  26. NASONEX [Concomitant]
  27. PROMETHAZINE [Concomitant]
  28. ASPIRIN [Concomitant]
  29. LOTENSIN [Concomitant]
  30. PHENAZOPYRIDINE HCL TAB [Concomitant]
  31. METHYLPREDNISOLONE 4MG TAB [Concomitant]
  32. DOXEPIN HCL [Concomitant]
  33. IBUPROFEN [Concomitant]
  34. MECLIZINE [Concomitant]
  35. NEURONTIN [Concomitant]
  36. FENOPROFEN CAL [Concomitant]
  37. HYOSCYAMINE [Concomitant]
  38. NORTRIPTYLINE HCL [Concomitant]
  39. PENICILLIN [Concomitant]
  40. SULFAMETHOXAZOLE AND TRIMETHOPRIM [Concomitant]
  41. FEXOFENADINE [Concomitant]
  42. TRIAMTERNE [Concomitant]
  43. ACTOS [Concomitant]
  44. METOCLOPRAMIDE [Concomitant]

REACTIONS (18)
  - ARTHRALGIA [None]
  - BLADDER PROLAPSE [None]
  - CHEST PAIN [None]
  - CYSTITIS [None]
  - DERMAL CYST [None]
  - DIABETES MELLITUS [None]
  - FACIAL PAIN [None]
  - HYPERGLYCAEMIA [None]
  - MALAISE [None]
  - NAIL DYSTROPHY [None]
  - NASAL CONGESTION [None]
  - OPEN ANGLE GLAUCOMA [None]
  - OSTEOARTHRITIS [None]
  - OSTEOPOROSIS [None]
  - PAIN IN EXTREMITY [None]
  - PELVIC INFLAMMATORY DISEASE [None]
  - POSTNASAL DRIP [None]
  - TORTICOLLIS [None]
